FAERS Safety Report 7660098-4 (Version None)
Quarter: 2011Q3

REPORT INFORMATION
  Report Type: 
  Country: None (occurrence: None)
  Receive Date: 20110805
  Receipt Date: 20110722
  Transmission Date: 20111222
  Serious: Yes (Hospitalization)
  Sender: FDA-Public Use
  Company Number: PHHY2011BR66803

PATIENT
  Sex: Female
  Weight: 84 kg

DRUGS (6)
  1. AAS INFANTIL [Concomitant]
     Indication: ISCHAEMIA
     Dosage: 1 DF, DAILY
     Route: 048
  2. INSULIN [Concomitant]
     Indication: DIABETES MELLITUS
     Dosage: 60 U, 40 IN THE MORNING AND 20 AT NIGHT
     Route: 048
  3. RASILEZ (ALISKIREN) [Concomitant]
     Dosage: 300 MG, UNK
     Route: 048
  4. DIOVAN [Suspect]
     Indication: HYPERTENSION
     Dosage: 2 DF, (320 MG) DAILY
     Route: 048
  5. ATENOLOL [Concomitant]
     Dosage: 50 MG, UNK
  6. CRESTOR [Concomitant]
     Dosage: 10 MG, UNK

REACTIONS (1)
  - ISCHAEMIA [None]
